FAERS Safety Report 19713664 (Version 1)
Quarter: 2021Q3

REPORT INFORMATION
  Report Type: Spontaneous
  Country: US (occurrence: US)
  Receive Date: 20210818
  Receipt Date: 20210818
  Transmission Date: 20211014
  Serious: No
  Sender: FDA-Public Use
  Company Number: US-BEH-2021134971

PATIENT
  Sex: Female

DRUGS (2)
  1. MAXALT [Concomitant]
     Active Substance: RIZATRIPTAN BENZOATE
     Indication: MIGRAINE
     Dosage: UNK, PRN
     Route: 065
  2. PRIVIGEN [Suspect]
     Active Substance: HUMAN IMMUNOGLOBULIN G
     Indication: AUTONOMIC NEUROPATHY
     Dosage: 40 GRAM, 400 ML, QD (FOR 3 DAYS, EVERY 4 WEEKS)
     Route: 042

REACTIONS (3)
  - No adverse event [Unknown]
  - Headache [Unknown]
  - Off label use [Unknown]
